FAERS Safety Report 6183305-6 (Version None)
Quarter: 2009Q2

REPORT INFORMATION
  Report Type: 
  Country: None (occurrence: None)
  Receive Date: 20090506
  Receipt Date: 20090424
  Transmission Date: 20091009
  Serious: Yes (Hospitalization)
  Sender: FDA-Public Use
  Company Number: 1000006063

PATIENT
  Age: 78 Year
  Sex: Female

DRUGS (3)
  1. ESCITALOPRAM [Suspect]
     Indication: DEPRESSION
     Dosage: ORAL
     Route: 048
     Dates: start: 20050101, end: 20060101
  2. ESCITALOPRAM [Suspect]
     Indication: DEPRESSION
     Dosage: ORAL
     Route: 048
     Dates: end: 20080101
  3. LASIX [Suspect]

REACTIONS (2)
  - COMA [None]
  - HYPONATRAEMIA [None]
